FAERS Safety Report 7297763-7 (Version None)
Quarter: 2011Q1

REPORT INFORMATION
  Report Type: 
  Country: None (occurrence: None)
  Receive Date: 20110214
  Receipt Date: 20110214
  Transmission Date: 20110831
  Serious: Yes (Other)
  Sender: FDA-Public Use
  Company Number: None

PATIENT
  Age: 27 Year
  Sex: Female
  Weight: 57.6068 kg

DRUGS (3)
  1. AFRIN [Suspect]
     Indication: NASOPHARYNGITIS
     Dosage: 2-3 SPRAYS 2X A DAY NASAL
     Route: 045
     Dates: start: 20110201, end: 20110203
  2. AFRIN [Suspect]
     Indication: NASOPHARYNGITIS
     Dosage: 2-3 SPRAYS 2X A DAY NASAL
     Route: 045
     Dates: start: 20110210, end: 20110213
  3. UNKNOWN [Concomitant]

REACTIONS (2)
  - ANOSMIA [None]
  - AGEUSIA [None]
